FAERS Safety Report 8594312-8 (Version None)
Quarter: 2012Q3

REPORT INFORMATION
  Report Type: 
  Country: None (occurrence: None)
  Receive Date: 20120815
  Receipt Date: 20120810
  Transmission Date: 20120928
  Serious: Yes (Hospitalization)
  Sender: FDA-Public Use
  Company Number: US-BIOGENIDEC-2012BI030513

PATIENT
  Age: 51 Year
  Sex: Female

DRUGS (1)
  1. AVONEX [Suspect]
     Indication: MULTIPLE SCLEROSIS
     Route: 030
     Dates: start: 20010101, end: 20110801

REACTIONS (6)
  - DYSKINESIA [None]
  - ANXIETY [None]
  - STRESS [None]
  - TREMOR [None]
  - MEMORY IMPAIRMENT [None]
  - FATIGUE [None]
